FAERS Safety Report 6616013-5 (Version None)
Quarter: 2010Q1

REPORT INFORMATION
  Report Type: 
  Country: None (occurrence: None)
  Receive Date: 20100305
  Receipt Date: 20100226
  Transmission Date: 20100710
  Serious: Yes (Hospitalization)
  Sender: FDA-Public Use
  Company Number: B0631330A

PATIENT
  Sex: Female

DRUGS (6)
  1. VALTREX [Suspect]
     Indication: HERPES ZOSTER
     Dosage: 3000MG PER DAY
     Route: 048
     Dates: start: 20100201, end: 20100202
  2. AMLODIPINE [Concomitant]
     Indication: HYPERTENSION
     Route: 048
  3. IBRUPROFEN [Concomitant]
     Dosage: 300MG PER DAY
     Route: 048
  4. ISALON [Concomitant]
     Dosage: 300MG PER DAY
     Route: 048
  5. MERISLON [Concomitant]
     Route: 048
  6. DEPAS [Concomitant]
     Route: 048

REACTIONS (3)
  - ALTERED STATE OF CONSCIOUSNESS [None]
  - MOVEMENT DISORDER [None]
  - RENAL FAILURE ACUTE [None]
